FAERS Safety Report 4698008-4 (Version None)
Quarter: 2005Q2

REPORT INFORMATION
  Report Type: 
  Country: None (occurrence: None)
  Receive Date: 20050620
  Receipt Date: 20050608
  Transmission Date: 20051028
  Serious: Yes (Disabling)
  Sender: FDA-Public Use
  Company Number: TCI2005A01882

PATIENT
  Age: 65 Year
  Sex: Female

DRUGS (6)
  1. ACTOS [Suspect]
     Indication: INSULIN-REQUIRING TYPE II DIABETES MELLITUS
     Dosage: 30 MG (30 MG, 1 IN 1 D) PER ORAL
     Route: 048
     Dates: start: 20041222, end: 20050126
  2. LIVALO (PITAVASTATIN CALCIUM) [Suspect]
     Indication: HYPERCHOLESTEROLAEMIA
     Dosage: 2 MG (2 MG, 1 IN 1 D) PER ORAL
     Route: 048
     Dates: end: 20041110
  3. BLOPRESS TABLETS 8 (CANDESARTAN CILEXETIL) [Concomitant]
  4. CHLORTHALIDONE [Concomitant]
  5. TAGAMET [Concomitant]
  6. GLYBURIDE [Concomitant]

REACTIONS (11)
  - ACIDOSIS [None]
  - ADVERSE DRUG REACTION [None]
  - ASTHENIA [None]
  - DEHYDRATION [None]
  - DIABETES MELLITUS INADEQUATE CONTROL [None]
  - HAEMOGLOBIN DECREASED [None]
  - PYREXIA [None]
  - RENAL IMPAIRMENT [None]
  - RHABDOMYOLYSIS [None]
  - VIRAL INFECTION [None]
  - WHITE BLOOD CELL COUNT DECREASED [None]
